FAERS Safety Report 7679888-7 (Version None)
Quarter: 2011Q3

REPORT INFORMATION
  Report Type: 
  Country: None (occurrence: None)
  Receive Date: 20110812
  Receipt Date: 20110808
  Transmission Date: 20111222
  Serious: Yes (Other)
  Sender: FDA-Public Use
  Company Number: US-PFIZER INC-2011181934

PATIENT
  Sex: Female

DRUGS (3)
  1. DILANTIN-125 [Suspect]
     Indication: CONVULSION
     Dosage: UNK
  2. EFFEXOR XR [Suspect]
     Indication: NERVE INJURY
     Dosage: 100 MG, 1X/DAY
     Route: 048
     Dates: start: 20050101
  3. TOPAMAX [Concomitant]
     Indication: CONVULSION
     Dosage: UNK, 2X/DAY

REACTIONS (1)
  - OVERDOSE [None]
